FAERS Safety Report 9849259 (Version 1)
Quarter: 2013Q4

REPORT INFORMATION
  Report Type: Spontaneous
  Country: US (occurrence: None)
  Receive Date: 20131223
  Receipt Date: 20131223
  Transmission Date: 20140711
  Serious: Yes (Death, Hospitalization)
  Sender: FDA-Public Use
  Company Number: CABO-13003445

PATIENT
  Age: 61 Year
  Sex: Male

DRUGS (4)
  1. COMETRIQ (CABOZANTINIB) CAPSULE [Suspect]
     Indication: THYROID CANCER
     Route: 048
     Dates: start: 20130727, end: 20131007
  2. LEVOTHYROXINE (LEVOTHYROXINE SODIUM) [Concomitant]
  3. SIMVASTATIN (SIMVASTATIN) [Concomitant]
  4. DEXAMETHASONE (DEXAMETHASONE SODIUM SUCCINATE) [Concomitant]

REACTIONS (2)
  - Sepsis [None]
  - Ileal perforation [None]
